FAERS Safety Report 10185031 (Version 1)
Quarter: 2014Q2

REPORT INFORMATION
  Report Type: Spontaneous
  Country: US (occurrence: None)
  Receive Date: 20140520
  Receipt Date: 20140520
  Transmission Date: 20141212
  Serious: Yes (Life-Threatening, Hospitalization, Disabling, Other)
  Sender: FDA-Public Use
  Company Number: None

PATIENT
  Age: 67 Year
  Sex: Male
  Weight: 97.98 kg

DRUGS (1)
  1. LIPITOR [Suspect]
     Indication: BLOOD CHOLESTEROL INCREASED
     Route: 048
     Dates: start: 19951104, end: 20140422

REACTIONS (6)
  - Dizziness [None]
  - Muscular weakness [None]
  - Myalgia [None]
  - Migraine [None]
  - Generalised tonic-clonic seizure [None]
  - Aphasia [None]
